FAERS Safety Report 5723109-9 (Version None)
Quarter: 2008Q2

REPORT INFORMATION
  Report Type: 
  Country: None (occurrence: None)
  Receive Date: 20080430
  Receipt Date: 20080417
  Transmission Date: 20081010
  Serious: Yes (Hospitalization)
  Sender: FDA-Public Use
  Company Number: IT-ELI_LILLY_AND_COMPANY-IT200804005032

PATIENT
  Age: 62 Year
  Sex: Male

DRUGS (4)
  1. GEMZAR [Suspect]
     Indication: BLADDER CANCER
     Dosage: UNK, UNKNOWN
     Route: 065
     Dates: start: 20070901, end: 20071101
  2. GEMZAR [Suspect]
     Dosage: UNK, UNKNOWN
     Route: 065
     Dates: start: 20080306, end: 20080313
  3. CISPLATIN [Concomitant]
     Indication: BLADDER CANCER
     Dosage: UNK, UNKNOWN
     Route: 065
     Dates: start: 20070901, end: 20071101
  4. CISPLATIN [Concomitant]
     Dosage: UNK, UNKNOWN
     Route: 065
     Dates: start: 20080306, end: 20080313

REACTIONS (2)
  - HYDRONEPHROSIS [None]
  - INFECTION [None]
